FAERS Safety Report 11713820 (Version 1)
Quarter: 2015Q4

REPORT INFORMATION
  Report Type: Spontaneous
  Country: US (occurrence: None)
  Receive Date: 20151106
  Receipt Date: 20151106
  Transmission Date: 20160304
  Serious: Yes (Disabling)
  Sender: FDA-Public Use
  Company Number: None

PATIENT
  Age: 63 Year
  Sex: Female
  Weight: 90.27 kg

DRUGS (10)
  1. SIMVASTATIN. [Suspect]
     Active Substance: SIMVASTATIN
     Indication: BLOOD CHOLESTEROL INCREASED
     Route: 048
     Dates: start: 20071113, end: 20150221
  2. METFORMIN [Concomitant]
     Active Substance: METFORMIN HYDROCHLORIDE
  3. ROPINIROLE. [Concomitant]
     Active Substance: ROPINIROLE
  4. SYNTHROID [Concomitant]
     Active Substance: LEVOTHYROXINE SODIUM
  5. FOSAMAX [Concomitant]
     Active Substance: ALENDRONATE SODIUM
  6. BABY ASPIRIN [Concomitant]
     Active Substance: ASPIRIN
  7. TYLENOL PM [Concomitant]
     Active Substance: ACETAMINOPHEN\DIPHENHYDRAMINE
  8. FISH OIL WITH VIT D [Concomitant]
  9. B VITAMIN COMPLEX [Concomitant]
  10. ONE A DAY MULTI VITAMIN [Concomitant]

REACTIONS (8)
  - Therapy cessation [None]
  - Arthralgia [None]
  - Insomnia [None]
  - Drug hypersensitivity [None]
  - Fibromyalgia [None]
  - Pain [None]
  - Muscle spasms [None]
  - Muscle contracture [None]
